FAERS Safety Report 11269465 (Version 1)
Quarter: 2015Q3

REPORT INFORMATION
  Report Type: Spontaneous
  Country: GB (occurrence: None)
  Receive Date: 20150710
  Receipt Date: 20150710
  Transmission Date: 20151125
  Serious: Yes (Other)
  Sender: FDA-Public Use
  Company Number: 2015CHA00006

PATIENT
  Age: 80 Year
  Sex: Male

DRUGS (1)
  1. DOXYCYCLINE (DOXYCYCLINE) UNKNOWN [Suspect]
     Active Substance: DOXYCYCLINE
     Indication: PEMPHIGOID

REACTIONS (4)
  - Lethargy [None]
  - Depressed level of consciousness [None]
  - Hypoglycaemia [None]
  - Dizziness [None]
